FAERS Safety Report 7836787-5 (Version None)
Quarter: 2011Q4

REPORT INFORMATION
  Report Type: 
  Country: None (occurrence: None)
  Receive Date: 20111024
  Receipt Date: 20101202
  Transmission Date: 20120403
  Serious: No
  Sender: FDA-Public Use
  Company Number: US-ABBOTT-10P-163-0689182-00

PATIENT
  Sex: Female

DRUGS (1)
  1. LUPRON DEPOT [Suspect]
     Indication: PRODUCT USED FOR UNKNOWN INDICATION

REACTIONS (9)
  - ABDOMINAL PAIN [None]
  - MYALGIA [None]
  - HYPERTENSION [None]
  - BONE PAIN [None]
  - SUICIDAL IDEATION [None]
  - DEPRESSION [None]
  - PAIN [None]
  - ARTHRALGIA [None]
  - PAIN IN EXTREMITY [None]
